FAERS Safety Report 8949694 (Version 1)
Quarter: 2012Q4

REPORT INFORMATION
  Report Type: 
  Country: DE (occurrence: DE)
  Receive Date: 20121206
  Receipt Date: 20121206
  Transmission Date: 20130627
  Serious: Yes (Other)
  Sender: FDA-Public Use
  Company Number: DE-ASTRAZENECA-2012SE89796

PATIENT
  Age: 30315 Day
  Sex: Male
  Weight: 58 kg

DRUGS (5)
  1. BRILIQUE [Suspect]
     Indication: MYOCARDIAL INFARCTION
     Route: 048
     Dates: start: 201202
  2. ASS [Suspect]
     Indication: MYOCARDIAL INFARCTION
     Route: 048
     Dates: start: 201202
  3. SIMVASTATIN [Suspect]
     Indication: MYOCARDIAL INFARCTION
     Route: 048
     Dates: start: 201202
  4. METOPROLOL [Concomitant]
     Indication: MYOCARDIAL INFARCTION
     Route: 048
     Dates: start: 201202
  5. DELIX [Concomitant]
     Indication: MYOCARDIAL INFARCTION
     Route: 048
     Dates: start: 201202

REACTIONS (2)
  - Fall [Unknown]
  - Subdural haematoma [Not Recovered/Not Resolved]
